FAERS Safety Report 4605906-6 (Version None)
Quarter: 2005Q1

REPORT INFORMATION
  Report Type: 
  Country: None (occurrence: None)
  Receive Date: 20050311
  Receipt Date: 20050302
  Transmission Date: 20050727
  Serious: Yes (Other)
  Sender: FDA-Public Use
  Company Number: US-JNJFOC-20050301025

PATIENT
  Sex: Male
  Weight: 53.98 kg

DRUGS (2)
  1. LEVAQUIN [Suspect]
     Indication: PNEUMONIA
  2. COUGH MEDICINE [Concomitant]

REACTIONS (4)
  - AGEUSIA [None]
  - ASTHENIA [None]
  - FATIGUE [None]
  - WEIGHT DECREASED [None]
